FAERS Safety Report 10781413 (Version 1)
Quarter: 2015Q1

REPORT INFORMATION
  Report Type: Spontaneous
  Country: US (occurrence: US)
  Receive Date: 20150210
  Receipt Date: 20150210
  Transmission Date: 20150721
  Serious: No
  Sender: FDA-Public Use
  Company Number: US-GLAXOSMITHKLINE-A1066463A

PATIENT

DRUGS (2)
  1. EQUATE NICOTINE [Suspect]
     Active Substance: NICOTINE
     Indication: EX-TOBACCO USER
     Dates: start: 20140214, end: 20140314
  2. EQUATE NICOTINE [Suspect]
     Active Substance: NICOTINE
     Route: 062

REACTIONS (3)
  - Overdose [Unknown]
  - Malaise [Unknown]
  - Nausea [Not Recovered/Not Resolved]
